FAERS Safety Report 6552724-8 (Version None)
Quarter: 2010Q1

REPORT INFORMATION
  Report Type: 
  Country: None (occurrence: None)
  Receive Date: 20100126
  Receipt Date: 20100114
  Transmission Date: 20100710
  Serious: Yes (Hospitalization, Other)
  Sender: FDA-Public Use
  Company Number: US-ELI_LILLY_AND_COMPANY-US200911000016

PATIENT
  Sex: Female

DRUGS (15)
  1. FORTEO [Suspect]
     Dosage: UNK, UNK
     Dates: start: 20090601
  2. FORTEO [Suspect]
     Dates: end: 20090901
  3. FORTEO [Suspect]
  4. LANTUS [Concomitant]
  5. METFORMIN HCL [Concomitant]
  6. CALCIUM [Concomitant]
  7. ASPIRIN /SCH/ [Concomitant]
  8. GLIPIZIDE [Concomitant]
  9. GABAPENTIN [Concomitant]
  10. CYMBALTA [Concomitant]
  11. METOPROLOL SUCCINATE [Concomitant]
  12. OMEPRAZOLE [Concomitant]
  13. OXYCODONE [Concomitant]
  14. OXYCONTIN [Concomitant]
  15. AMBIEN [Concomitant]
     Dosage: UNK, AS NEEDED

REACTIONS (9)
  - BLOOD GLUCOSE DECREASED [None]
  - CEREBRAL INFARCTION [None]
  - DEHYDRATION [None]
  - DYSPHAGIA [None]
  - FALL [None]
  - MEMORY IMPAIRMENT [None]
  - POST PROCEDURAL INFECTION [None]
  - SLEEP DISORDER [None]
  - SPEECH DISORDER [None]
